FAERS Safety Report 12859654 (Version 2)
Quarter: 2016Q4

REPORT INFORMATION
  Report Type: Spontaneous
  Country: JP (occurrence: JP)
  Receive Date: 20161018
  Receipt Date: 20161108
  Transmission Date: 20170207
  Serious: Yes (Other)
  Sender: FDA-Public Use
  Company Number: ALJP2016JP001355

PATIENT
  Age: 79 Year
  Sex: Male

DRUGS (4)
  1. TRAVATAN Z [Suspect]
     Active Substance: TRAVOPROST
     Indication: OPEN ANGLE GLAUCOMA
     Dosage: 1 GTT, QD
     Route: 047
     Dates: start: 20160914, end: 20160921
  2. MIKELAN [Concomitant]
     Active Substance: CARTEOLOL HYDROCHLORIDE
     Indication: OPEN ANGLE GLAUCOMA
     Dosage: 1 GTT, QD
     Route: 047
     Dates: start: 20160729
  3. RINDERON V [Concomitant]
     Active Substance: BETAMETHASONE VALERATE
     Indication: CORNEAL DISORDER
     Dosage: 1 GTT, QID
     Route: 047
     Dates: start: 20160921
  4. FLUOROMETHOLONE. [Concomitant]
     Active Substance: FLUOROMETHOLONE
     Indication: CORNEAL DISORDER
     Dosage: 1 GTT, BID
     Route: 047
     Dates: start: 20160914, end: 20160921

REACTIONS (1)
  - Corneal disorder [Recovered/Resolved]

NARRATIVE: CASE EVENT DATE: 20160921
